FAERS Safety Report 5420862-9 (Version None)
Quarter: 2007Q3

REPORT INFORMATION
  Report Type: 
  Country: None (occurrence: None)
  Receive Date: 20070817
  Receipt Date: 20070813
  Transmission Date: 20080115
  Serious: Yes (Hospitalization, Other)
  Sender: FDA-Public Use
  Company Number: 2007-GWUS-0398

PATIENT
  Age: 68 Year
  Sex: Female
  Weight: 65.7716 kg

DRUGS (7)
  1. ALDARA [Suspect]
     Indication: BASAL CELL CARCINOMA
     Dosage: APPLICATION - 7XW- TOPICAL
     Route: 061
     Dates: start: 20070602, end: 20070811
  2. ALDARA [Suspect]
     Indication: BIOPSY
     Dosage: APPLICATION - 7XW- TOPICAL
     Route: 061
     Dates: start: 20070602, end: 20070811
  3. HYDROCHLOROTHIAZIDE [Concomitant]
  4. TENORMIN [Concomitant]
  5. NIFEDIPINE XL (PROCARDIA) [Concomitant]
  6. CLONIDINE (CATAPRES) [Concomitant]
  7. PRINIVIL [Concomitant]

REACTIONS (8)
  - APPLICATION SITE ERYTHEMA [None]
  - APPLICATION SITE IRRITATION [None]
  - APPLICATION SITE SCAB [None]
  - BLOOD PRESSURE INCREASED [None]
  - BRONCHITIS [None]
  - HAEMATOCHEZIA [None]
  - ORAL HERPES [None]
  - URINARY TRACT INFECTION [None]
